FAERS Safety Report 7129011-2 (Version None)
Quarter: 2010Q4

REPORT INFORMATION
  Report Type: 
  Country: None (occurrence: None)
  Receive Date: 20101130
  Receipt Date: 20101116
  Transmission Date: 20110411
  Serious: Yes (Hospitalization)
  Sender: FDA-Public Use
  Company Number: GXKR2010US13004

PATIENT
  Age: 13 Month

DRUGS (1)
  1. DIPHENHYDRAMINE HCL [Suspect]
     Dosage: 24 DF, ONCE/SINGLE
     Route: 065

REACTIONS (6)
  - GRAND MAL CONVULSION [None]
  - HOT FLUSH [None]
  - MENTAL DISORDER [None]
  - NYSTAGMUS [None]
  - OVERDOSE [None]
  - TACHYCARDIA [None]
